FAERS Safety Report 21900518 (Version 1)
Quarter: 2023Q1

REPORT INFORMATION
  Report Type: Spontaneous
  Country: US (occurrence: US)
  Receive Date: 20230123
  Receipt Date: 20230123
  Transmission Date: 20230417
  Serious: No
  Sender: FDA-Public Use
  Company Number: US-NOVOPROD-967413

PATIENT
  Sex: Female

DRUGS (1)
  1. OZEMPIC [Suspect]
     Active Substance: SEMAGLUTIDE
     Indication: Type 2 diabetes mellitus
     Dosage: 0.5 MG, QW
     Route: 058
     Dates: start: 20220607, end: 20220927

REACTIONS (12)
  - Asthenia [Recovered/Resolved]
  - Anxiety [Recovered/Resolved]
  - Presyncope [Recovered/Resolved]
  - Somnolence [Recovered/Resolved]
  - Respiration abnormal [Not Recovered/Not Resolved]
  - Agitation [Not Recovered/Not Resolved]
  - Tremor [Recovered/Resolved]
  - Feeling jittery [Recovered/Resolved]
  - Irritability [Not Recovered/Not Resolved]
  - Dizziness [Recovered/Resolved]
  - Dizziness [Recovered/Resolved]
  - Blood glucose increased [Not Recovered/Not Resolved]
